FAERS Safety Report 25088674 (Version 1)
Quarter: 2025Q1

REPORT INFORMATION
  Report Type: Spontaneous
  Country: ES (occurrence: ES)
  Receive Date: 20250318
  Receipt Date: 20250318
  Transmission Date: 20250409
  Serious: Yes (Hospitalization)
  Sender: ACCORD
  Company Number: None

PATIENT
  Age: 70 Year
  Sex: Male
  Weight: 55 kg

DRUGS (3)
  1. CARBOPLATIN [Suspect]
     Active Substance: CARBOPLATIN
     Indication: Oropharyngeal squamous cell carcinoma
     Dates: start: 20241224, end: 20241224
  2. FLUOROURACIL [Suspect]
     Active Substance: FLUOROURACIL
     Indication: Oropharyngeal squamous cell carcinoma
     Dates: start: 20241224, end: 20241224
  3. ERBITUX [Suspect]
     Active Substance: CETUXIMAB
     Indication: Oropharyngeal squamous cell carcinoma
     Dates: start: 20241224, end: 20241224

REACTIONS (1)
  - Pancytopenia [Recovered/Resolved]

NARRATIVE: CASE EVENT DATE: 20250101
